FAERS Safety Report 5826380-8 (Version None)
Quarter: 2008Q3

REPORT INFORMATION
  Report Type: 
  Country: None (occurrence: None)
  Receive Date: 20080729
  Receipt Date: 20080711
  Transmission Date: 20090109
  Serious: No
  Sender: FDA-Public Use
  Company Number: US-BOEHRINGER INGELHEIM GMBH, GERMANY-2008-BP-10864BP

PATIENT
  Sex: Female

DRUGS (9)
  1. CATAPRES-TTS-1 [Suspect]
     Indication: HYPERTENSION
     Route: 061
     Dates: start: 20010101
  2. PEPCID [Concomitant]
     Indication: STOMACH DISCOMFORT
  3. SERAX [Concomitant]
     Indication: DEPRESSION
     Dates: start: 20080627
  4. SYNTHROID [Concomitant]
     Indication: HYPOTHYROIDISM
  5. AMLODIPINE [Concomitant]
     Indication: HYPERTENSION
  6. MAALOX [Concomitant]
     Indication: STOMACH DISCOMFORT
  7. PREDNISONE [Concomitant]
     Indication: PROPHYLAXIS AGAINST TRANSPLANT REJECTION
  8. CELLCEPT [Concomitant]
     Indication: PROPHYLAXIS AGAINST TRANSPLANT REJECTION
  9. PROGRAFT [Concomitant]
     Indication: PROPHYLAXIS AGAINST TRANSPLANT REJECTION

REACTIONS (8)
  - APPLICATION SITE ERYTHEMA [None]
  - APPLICATION SITE RASH [None]
  - APPLICATION SITE VESICLES [None]
  - FUNGAL INFECTION [None]
  - GLAUCOMA [None]
  - JOINT SWELLING [None]
  - NASAL DRYNESS [None]
  - VAGINAL INFECTION [None]
